FAERS Safety Report 5275824-1 (Version None)
Quarter: 2007Q1

REPORT INFORMATION
  Report Type: 
  Country: None (occurrence: None)
  Receive Date: 20061213
  Receipt Date: 20041123
  Transmission Date: 20070707
  Serious: No
  Sender: FDA-Public Use
  Company Number: 2004UW24127

PATIENT
  Sex: Female

DRUGS (1)
  1. SEROQUEL [Suspect]
     Dates: start: 19990101

REACTIONS (3)
  - DRY EYE [None]
  - EYE PAIN [None]
  - GLAUCOMA [None]
